FAERS Safety Report 9096130 (Version 1)
Quarter: 2013Q1

REPORT INFORMATION
  Report Type: Spontaneous
  Country: US (occurrence: US)
  Receive Date: 20130207
  Receipt Date: 20130207
  Transmission Date: 20140127
  Serious: Yes (Other)
  Sender: FDA-Public Use
  Company Number: US-BAYER-2013-012627

PATIENT
  Sex: Male

DRUGS (1)
  1. GADAVIST [Suspect]

REACTIONS (2)
  - Fall [None]
  - Unevaluable event [None]
